FAERS Safety Report 9262776 (Version 1)
Quarter: 2013Q2

REPORT INFORMATION
  Report Type: Spontaneous
  Country: US (occurrence: None)
  Receive Date: 20130426
  Receipt Date: 20130426
  Transmission Date: 20140414
  Serious: No
  Sender: FDA-Public Use
  Company Number: None

PATIENT
  Age: 78 None
  Sex: Male

DRUGS (1)
  1. PREGABALIN [Suspect]
     Indication: PAIN
     Route: 048
     Dates: start: 20120901, end: 20130220

REACTIONS (1)
  - Oedema [None]
